FAERS Safety Report 13211828 (Version 1)
Quarter: 2017Q1

REPORT INFORMATION
  Report Type: Spontaneous
  Country: FR (occurrence: FR)
  Receive Date: 20170210
  Receipt Date: 20170210
  Transmission Date: 20170428
  Serious: Yes (Hospitalization, Other)
  Sender: FDA-Public Use
  Company Number: FR-ELI_LILLY_AND_COMPANY-FR201702000163

PATIENT
  Age: 35 Year
  Sex: Male

DRUGS (2)
  1. CYMBALTA [Suspect]
     Active Substance: DULOXETINE HYDROCHLORIDE
     Indication: DEPRESSION
     Dosage: 60 MG, QD
     Route: 048
     Dates: start: 20160210, end: 201603
  2. RIFINAH [Interacting]
     Active Substance: ISONIAZID\RIFAMPIN
     Indication: TUBERCULOSIS
     Dosage: 2 DF, QD
     Route: 048
     Dates: start: 20160220, end: 20160526

REACTIONS (9)
  - Psychomotor retardation [Unknown]
  - Leukopenia [Recovered/Resolved]
  - Suicide attempt [Recovered/Resolved]
  - Pain [Unknown]
  - Merycism [Unknown]
  - Gait disturbance [Unknown]
  - Latent tuberculosis [Unknown]
  - Drug interaction [Recovered/Resolved]
  - Depressed mood [Unknown]

NARRATIVE: CASE EVENT DATE: 201603
